FAERS Safety Report 25847097 (Version 1)
Quarter: 2025Q3

REPORT INFORMATION
  Report Type: Report from Study
  Country: US (occurrence: US)
  Receive Date: 20250925
  Receipt Date: 20250925
  Transmission Date: 20251020
  Serious: No
  Sender: SUNOVION
  Company Number: US-SMPA-2025SPA012007

PATIENT
  Age: 66 Year
  Sex: Male

DRUGS (2)
  1. ORGOVYX [Suspect]
     Active Substance: RELUGOLIX
     Indication: Prostate cancer
     Route: 048
  2. ORGOVYX [Suspect]
     Active Substance: RELUGOLIX
     Route: 048
     Dates: start: 20250826, end: 20250909

REACTIONS (11)
  - Joint swelling [Unknown]
  - Feeling abnormal [Unknown]
  - Balance disorder [Unknown]
  - Erythema [Unknown]
  - Dysstasia [Unknown]
  - Limb discomfort [Recovering/Resolving]
  - Peripheral swelling [Recovering/Resolving]
  - Dizziness [Unknown]
  - Arthralgia [Unknown]
  - Feeling hot [Unknown]
  - Pain in extremity [Unknown]
